FAERS Safety Report 9723079 (Version 1)
Quarter: 2013Q4

REPORT INFORMATION
  Report Type: Spontaneous
  Country: US (occurrence: None)
  Receive Date: 20131127
  Receipt Date: 20131127
  Transmission Date: 20140711
  Serious: Yes (Other)
  Sender: FDA-Public Use
  Company Number: None

PATIENT
  Age: 6 Year
  Sex: Female
  Weight: 26.76 kg

DRUGS (1)
  1. BENZOCAINE [Suspect]
     Indication: TOOTHACHE
     Dosage: SMALL AMOUNT, FOUR TIMES DAILY, APPLIED TO A SURFACE, USUALLY THE SKIN
     Dates: start: 20131118, end: 20131118

REACTIONS (3)
  - Urticaria [None]
  - Erythema [None]
  - Swelling [None]
